FAERS Safety Report 23662220 (Version 1)
Quarter: 2024Q1

REPORT INFORMATION
  Report Type: Spontaneous
  Country: AU (occurrence: AU)
  Receive Date: 20240322
  Receipt Date: 20240322
  Transmission Date: 20240410
  Serious: Yes (Other)
  Sender: FDA-Public Use
  Company Number: AU-TEVA-VS-3173173

PATIENT
  Age: 20 Year
  Sex: Male

DRUGS (5)
  1. MELATONIN [Suspect]
     Active Substance: MELATONIN
     Route: 065
  2. FLUOXETINE HYDROCHLORIDE [Suspect]
     Active Substance: FLUOXETINE HYDROCHLORIDE
     Route: 065
  3. DRONABINOL [Suspect]
     Active Substance: DRONABINOL
     Route: 065
  4. CANNABINOL [Suspect]
     Active Substance: CANNABINOL
     Route: 065
  5. LITHIUM [Suspect]
     Active Substance: LITHIUM
     Route: 065

REACTIONS (4)
  - Generalised tonic-clonic seizure [Unknown]
  - Drug interaction [Unknown]
  - Overdose [Unknown]
  - Serotonin syndrome [Unknown]
